FAERS Safety Report 5164822-4 (Version None)
Quarter: 2006Q4

REPORT INFORMATION
  Report Type: 
  Country: None (occurrence: None)
  Receive Date: 20061205
  Receipt Date: 20061127
  Transmission Date: 20070319
  Serious: Yes (Other)
  Sender: FDA-Public Use
  Company Number: US-BRISTOL-MYERS SQUIBB COMPANY-13589361

PATIENT
  Age: 60 Year
  Sex: Female

DRUGS (24)
  1. CARBOPLATIN [Suspect]
     Indication: BREAST CANCER
     Dates: start: 20061012, end: 20061012
  2. PACLITAXEL [Suspect]
     Indication: BREAST CANCER
     Dates: start: 20061012, end: 20061012
  3. HERCEPTIN [Suspect]
     Indication: BREAST CANCER
     Dates: start: 20061012, end: 20061012
  4. NOVOLIN [Concomitant]
  5. LORAZEPAM [Concomitant]
  6. HYDROCODONE [Concomitant]
  7. LISINOPRIL [Concomitant]
  8. CELEBREX [Concomitant]
  9. METHOTREXATE [Concomitant]
  10. HUMIRA [Concomitant]
  11. NITROQUICK [Concomitant]
  12. QUININE SULFATE [Concomitant]
  13. FOLIC ACID [Concomitant]
  14. ALEVE [Concomitant]
  15. PROPOXYPHENE HYDROCHLORIDE [Concomitant]
  16. AZMACORT [Concomitant]
  17. LORTAB [Concomitant]
  18. OXYCODONE HCL [Concomitant]
  19. COMPAZINE [Concomitant]
  20. COMBIVENT [Concomitant]
  21. CLONAPIN [Concomitant]
  22. PRILOSEC [Concomitant]
  23. SENNA [Concomitant]
  24. COGENTIN [Concomitant]

REACTIONS (1)
  - CONFUSIONAL STATE [None]
